FAERS Safety Report 9939713 (Version 1)
Quarter: 2014Q1

REPORT INFORMATION
  Report Type: Spontaneous
  Country: US (occurrence: US)
  Receive Date: 20140303
  Receipt Date: 20140303
  Transmission Date: 20141002
  Serious: No
  Sender: FDA-Public Use
  Company Number: US-ABBVIE-13P-163-1036167-00

PATIENT
  Age: 58 Year
  Sex: Male

DRUGS (2)
  1. HUMIRA [Suspect]
     Indication: CROHN^S DISEASE
     Dates: start: 20120918
  2. MERCAPTOPURINE [Concomitant]
     Indication: CROHN^S DISEASE
     Dosage: DAILY

REACTIONS (1)
  - Drug ineffective [Not Recovered/Not Resolved]
